FAERS Safety Report 4753021-3 (Version None)
Quarter: 2005Q3

REPORT INFORMATION
  Report Type: 
  Country: None (occurrence: None)
  Receive Date: 20050826
  Receipt Date: 20050509
  Transmission Date: 20060218
  Serious: Yes (Hospitalization)
  Sender: FDA-Public Use
  Company Number: US-MERCK-0505USA01052

PATIENT
  Age: 45 Year
  Sex: Male
  Weight: 82 kg

DRUGS (1)
  1. VIOXX [Suspect]
     Indication: ARTHRITIS
     Route: 048
     Dates: start: 20010701, end: 20040901

REACTIONS (24)
  - ANGINA PECTORIS [None]
  - ANXIETY [None]
  - ATHEROSCLEROSIS [None]
  - BIPOLAR DISORDER [None]
  - BLOOD CHOLESTEROL INCREASED [None]
  - BRAIN DAMAGE [None]
  - CAROTID ARTERY STENOSIS [None]
  - CEREBROVASCULAR ACCIDENT [None]
  - CHRONIC FATIGUE SYNDROME [None]
  - CONVULSION [None]
  - CORONARY ARTERY DISEASE [None]
  - DECREASED IMMUNE RESPONSIVENESS [None]
  - DEMENTIA [None]
  - DEPRESSION [None]
  - DYSPEPSIA [None]
  - GASTRIC DISORDER [None]
  - HYPERTENSION [None]
  - HYPOXIA [None]
  - INSOMNIA [None]
  - MYOCARDIAL INFARCTION [None]
  - PAIN [None]
  - PANIC DISORDER [None]
  - PNEUMONIA [None]
  - TRANSIENT ISCHAEMIC ATTACK [None]
